FAERS Safety Report 15316459 (Version 1)
Quarter: 2018Q3

REPORT INFORMATION
  Report Type: Spontaneous
  Country: US (occurrence: US)
  Receive Date: 20180816
  Receipt Date: 20180816
  Transmission Date: 20181010
  Serious: No
  Sender: FDA-Public Use
  Company Number: None

PATIENT
  Age: 34 Year
  Sex: Female
  Weight: 105.23 kg

DRUGS (1)
  1. GLATIRAMER ACETATE, 40 MG MG/ML [Suspect]
     Active Substance: GLATIRAMER ACETATE
     Indication: MULTIPLE SCLEROSIS
     Route: 058
     Dates: start: 20180201, end: 20180324

REACTIONS (4)
  - Vision blurred [None]
  - Product substitution issue [None]
  - Chills [None]
  - Heart rate increased [None]

NARRATIVE: CASE EVENT DATE: 20180327
